FAERS Safety Report 5682618-1 (Version None)
Quarter: 2008Q1

REPORT INFORMATION
  Report Type: 
  Country: None (occurrence: None)
  Receive Date: 20080327
  Receipt Date: 20080319
  Transmission Date: 20080703
  Serious: Yes (Hospitalization, Other)
  Sender: FDA-Public Use
  Company Number: DK-AVENTIS-200812493GDDC

PATIENT
  Age: 40 Year
  Sex: Male

DRUGS (5)
  1. DESMOPRESSIN ACETATE [Suspect]
     Route: 042
     Dates: start: 20071217, end: 20071217
  2. FENTANYL [Concomitant]
     Route: 042
     Dates: start: 20071217, end: 20071217
  3. MIDAZOLAM HCL [Concomitant]
     Route: 042
     Dates: start: 20071217, end: 20071217
  4. THIOPENTAL SODIUM [Concomitant]
     Route: 042
     Dates: start: 20071217, end: 20071217
  5. MORPHINE [Concomitant]
     Route: 042
     Dates: start: 20071217, end: 20071217

REACTIONS (1)
  - PULMONARY EMBOLISM [None]
